FAERS Safety Report 4592552-6 (Version None)
Quarter: 2005Q1

REPORT INFORMATION
  Report Type: 
  Country: None (occurrence: None)
  Receive Date: 20050228
  Receipt Date: 20050218
  Transmission Date: 20050727
  Serious: Yes (Other)
  Sender: FDA-Public Use
  Company Number: PHEH2005US02262

PATIENT
  Age: 68 Year
  Sex: Male

DRUGS (5)
  1. EXELON [Suspect]
     Indication: AMNESIA
     Dosage: 3 MG, BID
     Route: 048
  2. ALLOPURINOL [Concomitant]
  3. ISOSORBIDE [Concomitant]
  4. DIOVAN [Concomitant]
  5. ZOCOR [Concomitant]

REACTIONS (4)
  - BLOOD BILIRUBIN INCREASED [None]
  - FEELING ABNORMAL [None]
  - HEPATIC INFECTION [None]
  - PRURITUS [None]
